FAERS Safety Report 7717450-8 (Version None)
Quarter: 2011Q3

REPORT INFORMATION
  Report Type: 
  Country: None (occurrence: None)
  Receive Date: 20110823
  Receipt Date: 20110413
  Transmission Date: 20111222
  Serious: Yes (Hospitalization)
  Sender: FDA-Public Use
  Company Number: 20110413CINRY1943

PATIENT
  Age: 42 Year
  Sex: Female

DRUGS (7)
  1. NORVASC [Concomitant]
  2. CINRYZE [Suspect]
     Indication: HEREDITARY ANGIOEDEMA
     Dosage: (1000, EVERY TUESDAY AND FRIDAY), INTRAVENOUS
     Route: 042
  3. CINRYZE [Suspect]
     Indication: PROPHYLAXIS
     Dosage: (1000, EVERY TUESDAY AND FRIDAY), INTRAVENOUS
     Route: 042
  4. MULTIVITAMIN (MULTIVITAMIN /00831701/) [Concomitant]
  5. GAVISCON (GAVISCON /00237601/) [Concomitant]
  6. ZYRTEC [Concomitant]
  7. PREVACID [Concomitant]

REACTIONS (2)
  - HEREDITARY ANGIOEDEMA [None]
  - CONDITION AGGRAVATED [None]
